FAERS Safety Report 9057280 (Version 1)
Quarter: 2013Q1

REPORT INFORMATION
  Report Type: Report from Study
  Country: JP (occurrence: JP)
  Receive Date: 20130131
  Receipt Date: 20130131
  Transmission Date: 20140127
  Serious: Yes (Other)
  Sender: FDA-Public Use
  Company Number: JP-GLAXOSMITHKLINE-B0860441A

PATIENT
  Age: 84 None
  Sex: Female
  Weight: 44 kg

DRUGS (6)
  1. TYKERB [Suspect]
     Route: 048
     Dates: start: 20091106, end: 20100716
  2. XELODA [Suspect]
     Route: 048
     Dates: start: 20091106, end: 20091126
  3. XELODA [Suspect]
     Route: 048
     Dates: start: 20091127, end: 20100628
  4. HYSRON-H [Concomitant]
     Indication: BREAST CANCER
     Route: 048
     Dates: start: 20100702
  5. TRASTUZUMAB [Concomitant]
     Indication: BREAST CANCER
     Route: 042
     Dates: start: 20100723, end: 20100723
  6. TRASTUZUMAB [Concomitant]
     Indication: BREAST CANCER
     Route: 042
     Dates: start: 20100730

REACTIONS (6)
  - Duodenal ulcer [Recovering/Resolving]
  - Rash [Recovering/Resolving]
  - Palmar-plantar erythrodysaesthesia syndrome [Recovering/Resolving]
  - Diarrhoea [Recovering/Resolving]
  - Decreased appetite [Recovering/Resolving]
  - Rash [Recovering/Resolving]
